FAERS Safety Report 8261075-5 (Version None)
Quarter: 2012Q2

REPORT INFORMATION
  Report Type: 
  Country: None (occurrence: None)
  Receive Date: 20120405
  Receipt Date: 20120329
  Transmission Date: 20120825
  Serious: Yes (Other)
  Sender: FDA-Public Use
  Company Number: PHHY2012DE002611

PATIENT
  Sex: Male

DRUGS (16)
  1. METOPROLOL TARTRATE [Concomitant]
     Dosage: 0.5 DF, QD
  2. OMEPRAZOLE [Concomitant]
     Dosage: 1 DF, QD
  3. RAMIPRIL [Concomitant]
     Dosage: 3 DF, QD
  4. AMLODIPINE [Concomitant]
     Dosage: 1 DF, QD
     Dates: start: 20110101
  5. SULFASALAZINE [Concomitant]
     Dosage: 1 DF, BID
     Dates: start: 20110101
  6. AZULFIDINE [Concomitant]
     Dosage: 3 DF, QD
     Dates: start: 20110101
  7. SIMVASTATIN [Concomitant]
     Dosage: 1 DF, QD
  8. RAMIPRIL [Concomitant]
     Dosage: 1 DF, QD
  9. RAMIPRIL [Concomitant]
     Dosage: 1 DF, QD
  10. LANTUS [Concomitant]
     Dosage: 14 IU
  11. RASILEZ [Suspect]
     Indication: HYPERTENSION
     Dosage: 1 DF, QD
     Route: 048
     Dates: start: 20100428, end: 20111102
  12. METAMIZOL [Concomitant]
     Dosage: 1 DF, BID
  13. MOXONIDINE [Concomitant]
     Dosage: 1 DF, QD
  14. FENTANYL-100 [Concomitant]
     Dosage: UNK
     Dates: start: 20110101, end: 20110101
  15. CITALOPRAM HYDROBROMIDE [Concomitant]
     Dosage: 1 DF, QD
     Dates: start: 20110101
  16. METOPROLOL TARTRATE [Concomitant]
     Dosage: 1 DF, QD

REACTIONS (1)
  - CEREBRAL INFARCTION [None]
